FAERS Safety Report 17407825 (Version 6)
Quarter: 2020Q2

REPORT INFORMATION
  Report Type: Spontaneous
  Country: US (occurrence: US)
  Receive Date: 20200212
  Receipt Date: 20200529
  Transmission Date: 20200713
  Serious: No
  Sender: FDA-Public Use
  Company Number: US-PFIZER INC-2020058167

PATIENT
  Age: 54 Year
  Sex: Female

DRUGS (4)
  1. DITROPAN [Concomitant]
     Active Substance: OXYBUTYNIN CHLORIDE
     Dosage: UNK
  2. XELJANZ XR [Suspect]
     Active Substance: TOFACITINIB CITRATE
     Dosage: 11 MG, DAILY
     Route: 048
     Dates: start: 20200224
  3. CYMBALTA [Concomitant]
     Active Substance: DULOXETINE HYDROCHLORIDE
     Dosage: UNK
  4. XELJANZ XR [Suspect]
     Active Substance: TOFACITINIB CITRATE
     Indication: RHEUMATOID ARTHRITIS
     Dosage: 11 MG, ONCE A DAY
     Route: 048
     Dates: start: 2018

REACTIONS (17)
  - Asthma [Unknown]
  - Cystitis [Recovering/Resolving]
  - Depression [Recovering/Resolving]
  - Therapeutic product effect incomplete [Unknown]
  - Immune system disorder [Unknown]
  - Micturition urgency [Unknown]
  - Chest pain [Not Recovered/Not Resolved]
  - Dyspnoea [Recovered/Resolved]
  - Electrocardiogram abnormal [Unknown]
  - Myalgia [Not Recovered/Not Resolved]
  - Malaise [Unknown]
  - Constipation [Unknown]
  - Cough [Unknown]
  - Muscle strain [Unknown]
  - Rhinorrhoea [Unknown]
  - Therapeutic response unexpected [Unknown]
  - Blood cholesterol increased [Unknown]
